FAERS Safety Report 9622054 (Version 1)
Quarter: 2013Q4

REPORT INFORMATION
  Report Type: Spontaneous
  Country: US (occurrence: US)
  Receive Date: 20131015
  Receipt Date: 20131015
  Transmission Date: 20140711
  Serious: No
  Sender: FDA-Public Use
  Company Number: US-PURDUE-USA-2012-0085599

PATIENT
  Age: 58 Year
  Sex: Female
  Weight: 70.75 kg

DRUGS (1)
  1. BUTRANS [Suspect]
     Indication: BACK PAIN
     Dosage: 10 MCG/HR, UNK
     Route: 062
     Dates: start: 201201

REACTIONS (4)
  - Wrong technique in drug usage process [Unknown]
  - Drug ineffective [Unknown]
  - Dry mouth [Unknown]
  - Somnolence [Unknown]
